FAERS Safety Report 4303230-2 (Version None)
Quarter: 2004Q1

REPORT INFORMATION
  Report Type: 
  Country: None (occurrence: None)
  Receive Date: 20040223
  Receipt Date: 20040211
  Transmission Date: 20041129
  Serious: Yes (Hospitalization, Other)
  Sender: FDA-Public Use
  Company Number: HQWYE933011FEB04

PATIENT
  Age: 64 Year
  Sex: Male
  Weight: 81.9 kg

DRUGS (3)
  1. MYLOTARG [Suspect]
     Indication: ACUTE MYELOID LEUKAEMIA
     Dosage: 9 MG/M^2 1 X PER 1 DAY, INTRAVENOUS
     Route: 042
     Dates: start: 20031020, end: 20031020
  2. ACYCLOVIR [Concomitant]
  3. IMIPENEM (IMIPENEM) [Concomitant]

REACTIONS (2)
  - NEUTROPENIA [None]
  - PNEUMONIA FUNGAL [None]
